FAERS Safety Report 13184043 (Version 2)
Quarter: 2017Q1

REPORT INFORMATION
  Report Type: Spontaneous
  Country: HN (occurrence: HN)
  Receive Date: 20170203
  Receipt Date: 20170221
  Transmission Date: 20170428
  Serious: Yes (Hospitalization)
  Sender: FDA-Public Use
  Company Number: GT-MERCK KGAA-1062696

PATIENT
  Sex: Female

DRUGS (3)
  1. IODINE (131 I) [Concomitant]
     Active Substance: SODIUM IODIDE I-131
  2. ALFACALCIDOL [Concomitant]
     Active Substance: ALFACALCIDOL
  3. NOVOTHYROX [Suspect]
     Active Substance: LEVOTHYROXINE SODIUM
     Indication: POST PROCEDURAL HYPOTHYROIDISM

REACTIONS (1)
  - Blood calcium abnormal [Unknown]

NARRATIVE: CASE EVENT DATE: 201612
